FAERS Safety Report 23367973 (Version 1)
Quarter: 2024Q1

REPORT INFORMATION
  Report Type: Spontaneous
  Country: GB (occurrence: GB)
  Receive Date: 20240105
  Receipt Date: 20240105
  Transmission Date: 20240410
  Serious: Yes (Other)
  Sender: FDA-Public Use
  Company Number: None

PATIENT
  Age: 65 Year
  Sex: Female
  Weight: 60 kg

DRUGS (1)
  1. TERBINAFINE [Suspect]
     Active Substance: TERBINAFINE
     Indication: Fungal infection
     Dosage: FROM MEMORY (NOT TOO SURE ABOUT DOSAGE AMOUNT)
     Dates: start: 20230801, end: 20231011

REACTIONS (6)
  - Skin exfoliation [Unknown]
  - Pruritus [Unknown]
  - Pain of skin [Unknown]
  - Dry skin [Unknown]
  - Systemic lupus erythematosus rash [Not Recovered/Not Resolved]
  - Incorrect product formulation administered [Unknown]

NARRATIVE: CASE EVENT DATE: 20231004
